FAERS Safety Report 13846488 (Version 1)
Quarter: 2017Q3

REPORT INFORMATION
  Report Type: Spontaneous
  Country: US (occurrence: US)
  Receive Date: 20170808
  Receipt Date: 20170808
  Transmission Date: 20171127
  Serious: Yes (Other)
  Sender: FDA-Public Use
  Company Number: US-ABBVIE-16P-163-1741125-00

PATIENT
  Sex: Male
  Weight: 87.62 kg

DRUGS (6)
  1. DILANTIN [Suspect]
     Active Substance: PHENYTOIN
     Indication: SEIZURE
     Route: 065
  2. DEPAKOTE [Suspect]
     Active Substance: DIVALPROEX SODIUM
     Indication: PETIT MAL EPILEPSY
     Dosage: DOSE INCREASED
     Route: 065
  3. PHENYTOIN. [Suspect]
     Active Substance: PHENYTOIN
     Indication: SEIZURE
     Route: 065
  4. DEPAKOTE [Suspect]
     Active Substance: DIVALPROEX SODIUM
     Dosage: DOSE INCREASE
     Route: 065
  5. KEPPRA [Suspect]
     Active Substance: LEVETIRACETAM
     Indication: PETIT MAL EPILEPSY
     Dosage: 2 AM AND 2 NIGHT
     Route: 048
  6. NEURONTIN [Suspect]
     Active Substance: GABAPENTIN
     Indication: PETIT MAL EPILEPSY
     Route: 065

REACTIONS (5)
  - Generalised tonic-clonic seizure [Unknown]
  - Epilepsy [Unknown]
  - Drug prescribing error [Unknown]
  - Drug ineffective [Unknown]
  - Petit mal epilepsy [Unknown]

NARRATIVE: CASE EVENT DATE: 2016
